FAERS Safety Report 25021593 (Version 2)
Quarter: 2025Q1

REPORT INFORMATION
  Report Type: Report from Study
  Country: CA (occurrence: CA)
  Receive Date: 20250228
  Receipt Date: 20250330
  Transmission Date: 20250408
  Serious: No
  Sender: SANDOZ
  Company Number: CA-002147023-NVSC2022CA214831

PATIENT
  Age: 77 Year
  Sex: Female

DRUGS (4)
  1. ERELZI [Suspect]
     Active Substance: ETANERCEPT-SZZS
     Indication: Rheumatoid arthritis
     Dosage: 50 MG, QW
     Route: 058
     Dates: start: 20211021
  2. ENBREL [Concomitant]
     Active Substance: ETANERCEPT
     Indication: Product used for unknown indication
     Route: 065
  3. METHOTREXATE [Concomitant]
     Active Substance: METHOTREXATE
     Indication: Product used for unknown indication
     Route: 065
  4. PLAQUENIL [Concomitant]
     Active Substance: HYDROXYCHLOROQUINE SULFATE
     Indication: Product used for unknown indication
     Route: 065

REACTIONS (6)
  - Movement disorder [Unknown]
  - General physical health deterioration [Unknown]
  - Gait disturbance [Unknown]
  - Injection site bruising [Recovered/Resolved]
  - Circumstance or information capable of leading to medication error [Unknown]
  - Drug dose omission by device [Unknown]

NARRATIVE: CASE EVENT DATE: 20220921
